FAERS Safety Report 18526109 (Version 1)
Quarter: 2020Q4

REPORT INFORMATION
  Report Type: Spontaneous
  Country: PT (occurrence: PT)
  Receive Date: 20201120
  Receipt Date: 20201120
  Transmission Date: 20210114
  Serious: Yes (Other)
  Sender: FDA-Public Use
  Company Number: PT-AXELLIA-003504

PATIENT
  Age: 84 Year
  Sex: Male

DRUGS (2)
  1. VANCOMYCIN [Suspect]
     Active Substance: VANCOMYCIN
     Indication: SERRATIA INFECTION
  2. CIPRO [Suspect]
     Active Substance: CIPROFLOXACIN HYDROCHLORIDE
     Indication: SERRATIA INFECTION

REACTIONS (3)
  - Productive cough [Unknown]
  - Drug ineffective [Unknown]
  - Lung abscess [Unknown]
